FAERS Safety Report 6744604-X (Version None)
Quarter: 2010Q2

REPORT INFORMATION
  Report Type: 
  Country: None (occurrence: None)
  Receive Date: 20100527
  Receipt Date: 20100517
  Transmission Date: 20101027
  Serious: Yes (Death)
  Sender: FDA-Public Use
  Company Number: CA-ABBOTT-09P-028-0601656-00

PATIENT
  Sex: Male
  Weight: 77 kg

DRUGS (15)
  1. HUMIRA [Suspect]
     Indication: COLITIS ULCERATIVE
     Route: 058
     Dates: start: 20090413, end: 20091005
  2. PREDNISONE TAB [Concomitant]
     Indication: COLITIS ULCERATIVE
     Dates: start: 20080121, end: 20080125
  3. PREDNISONE TAB [Concomitant]
     Dates: start: 20080126, end: 20080130
  4. PREDNISONE TAB [Concomitant]
     Dates: start: 20080326
  5. PREDNISONE TAB [Concomitant]
     Dates: start: 20080116, end: 20080120
  6. PREDNISONE TAB [Concomitant]
     Dates: start: 20090204, end: 20090210
  7. PREDNISONE TAB [Concomitant]
     Dates: start: 20090211, end: 20090217
  8. PREDNISONE TAB [Concomitant]
     Dates: start: 20080206, end: 20080212
  9. PREDNISONE TAB [Concomitant]
     Dates: start: 20080213, end: 20080219
  10. PREDNISONE TAB [Concomitant]
     Dates: start: 20090121, end: 20090127
  11. PREDNISONE TAB [Concomitant]
     Dates: start: 20090128, end: 20090203
  12. PREDNISONE TAB [Concomitant]
     Dates: start: 20080220, end: 20080226
  13. PREDNISONE TAB [Concomitant]
     Dates: start: 20080227, end: 20080304
  14. PREDNISONE TAB [Concomitant]
     Dates: start: 20080305, end: 20080317
  15. PREDNISONE TAB [Concomitant]
     Dates: start: 20080318, end: 20080323

REACTIONS (1)
  - CARDIO-RESPIRATORY ARREST [None]
